FAERS Safety Report 4341236-8 (Version None)
Quarter: 2004Q2

REPORT INFORMATION
  Report Type: 
  Country: None (occurrence: None)
  Receive Date: 20040419
  Receipt Date: 20021030
  Transmission Date: 20050107
  Serious: Yes (Hospitalization)
  Sender: FDA-Public Use
  Company Number: US-MERCK-0210USA02979

PATIENT
  Age: 75 Year
  Sex: Male
  Weight: 70 kg

DRUGS (4)
  1. LANOXIN [Concomitant]
     Route: 065
  2. ZESTRIL [Concomitant]
     Route: 065
  3. VIOXX [Suspect]
     Indication: PROPHYLAXIS
     Route: 048
  4. ZOCOR [Concomitant]
     Route: 065

REACTIONS (6)
  - CEREBRAL ATROPHY [None]
  - CEREBROVASCULAR ACCIDENT [None]
  - DILATATION ATRIAL [None]
  - HEART RATE IRREGULAR [None]
  - TRANSIENT ISCHAEMIC ATTACK [None]
  - VISUAL ACUITY REDUCED [None]
